FAERS Safety Report 25165883 (Version 4)
Quarter: 2025Q2

REPORT INFORMATION
  Report Type: Report from Study
  Country: CA (occurrence: CA)
  Receive Date: 20250407
  Receipt Date: 20250528
  Transmission Date: 20250716
  Serious: Yes (Other)
  Sender: TAKEDA
  Company Number: CA-TAKEDA-2025TUS028205

PATIENT
  Age: 34 Year
  Sex: Male

DRUGS (3)
  1. VEDOLIZUMAB [Suspect]
     Active Substance: VEDOLIZUMAB
     Indication: Colitis ulcerative
     Dates: start: 20180719, end: 20250314
  2. PREDNISONE [Concomitant]
     Active Substance: PREDNISONE
  3. IMODIUM [Concomitant]
     Active Substance: LOPERAMIDE HYDROCHLORIDE

REACTIONS (17)
  - Haematochezia [Unknown]
  - Discomfort [Recovering/Resolving]
  - Pharyngeal paraesthesia [Recovering/Resolving]
  - Paraesthesia ear [Recovering/Resolving]
  - Lacrimation increased [Recovering/Resolving]
  - Malaise [Not Recovered/Not Resolved]
  - Rhinorrhoea [Recovering/Resolving]
  - Feeling cold [Recovered/Resolved]
  - Erythema [Recovering/Resolving]
  - Cough [Recovered/Resolved]
  - Rash [Recovered/Resolved]
  - Diarrhoea [Unknown]
  - Defaecation urgency [Unknown]
  - Frequent bowel movements [Unknown]
  - Poor quality sleep [Unknown]
  - Abdominal pain [Unknown]
  - Hypersensitivity [Unknown]

NARRATIVE: CASE EVENT DATE: 20250314
